FAERS Safety Report 9540459 (Version 1)
Quarter: 2013Q3

REPORT INFORMATION
  Report Type: Spontaneous
  Country: US (occurrence: US)
  Receive Date: 20130920
  Receipt Date: 20130920
  Transmission Date: 20140515
  Serious: Yes (Other)
  Sender: FDA-Public Use
  Company Number: US-ELI_LILLY_AND_COMPANY-US201309004733

PATIENT
  Age: 4 Year
  Sex: Male

DRUGS (2)
  1. HUMALOG LISPRO [Suspect]
     Dosage: UNK
     Route: 058
  2. HUMALOG LISPRO [Suspect]
     Dosage: 3 U, SINGLE
     Dates: start: 20130910, end: 20130910

REACTIONS (7)
  - Blood glucose increased [Unknown]
  - Blood ketone body [Unknown]
  - Blood glucose abnormal [Unknown]
  - Glassy eyes [Unknown]
  - Abdominal discomfort [Unknown]
  - Infusion site irritation [Unknown]
  - Infusion site discomfort [Unknown]
